FAERS Safety Report 5902504-9 (Version None)
Quarter: 2008Q3

REPORT INFORMATION
  Report Type: 
  Country: None (occurrence: None)
  Receive Date: 20080925
  Receipt Date: 20080912
  Transmission Date: 20090109
  Serious: Yes (Other)
  Sender: FDA-Public Use
  Company Number: 2008BI022607

PATIENT
  Age: 45 Year
  Sex: Male

DRUGS (3)
  1. TYSABRI [Suspect]
     Indication: MULTIPLE SCLEROSIS
     Dosage: IV; 300 MG; QM; IV
     Route: 042
     Dates: start: 20070301, end: 20070901
  2. TYSABRI [Suspect]
     Indication: MULTIPLE SCLEROSIS
     Dosage: IV; 300 MG; QM; IV
     Route: 042
     Dates: start: 20071029
  3. AVONEX [Concomitant]

REACTIONS (1)
  - HERNIA REPAIR [None]
